FAERS Safety Report 12447940 (Version 1)
Quarter: 2016Q2

REPORT INFORMATION
  Report Type: Spontaneous
  Country: DK (occurrence: DK)
  Receive Date: 20160608
  Receipt Date: 20160608
  Transmission Date: 20160815
  Serious: Yes (Life-Threatening)
  Sender: FDA-Public Use
  Company Number: DK-BAYER-2016-108712

PATIENT
  Age: 21 Year
  Sex: Female
  Weight: 58 kg

DRUGS (1)
  1. JAYDESS [Suspect]
     Active Substance: LEVONORGESTREL
     Indication: CONTRACEPTION
     Dosage: 14 MCG/24HR, CONT
     Route: 015
     Dates: start: 201411

REACTIONS (4)
  - Pregnancy with contraceptive device [Recovered/Resolved]
  - Abdominal pain [Recovered/Resolved]
  - Ectopic pregnancy [Recovered/Resolved]
  - Laparoscopic surgery [Recovered/Resolved]

NARRATIVE: CASE EVENT DATE: 20160514
